FAERS Safety Report 8348996-X (Version None)
Quarter: 2012Q2

REPORT INFORMATION
  Report Type: 
  Country: None (occurrence: None)
  Receive Date: 20120510
  Receipt Date: 20120430
  Transmission Date: 20120825
  Serious: Yes (Death)
  Sender: FDA-Public Use
  Company Number: FR-JNJFOC-20111107586

PATIENT
  Sex: Female

DRUGS (2)
  1. QUIXIL [Suspect]
     Indication: KNEE ARTHROPLASTY
     Route: 050
     Dates: start: 20110301, end: 20110301
  2. ALL OTHER THERAPEUTIC PRODUCTS [Concomitant]
     Indication: PRODUCT USED FOR UNKNOWN INDICATION
     Route: 050

REACTIONS (2)
  - DEATH [None]
  - PULMONARY EMBOLISM [None]
